FAERS Safety Report 8389839 (Version 4)
Quarter: 2013Q2

REPORT INFORMATION
  Report Type: Report from Study
  Country: US (occurrence: US)
  Receive Date: 20120203
  Receipt Date: 20130610
  Transmission Date: 20140414
  Serious: Yes (Other)
  Sender: FDA-Public Use
  Company Number: PHEH2012US002118

PATIENT
  Age: 19 Year
  Sex: Female
  Weight: 44 kg

DRUGS (14)
  1. AFINITOR [Suspect]
     Indication: ASTROCYTOMA, LOW GRADE
     Dosage: 7.5 MG, DAILY
     Route: 048
     Dates: start: 20110131
  2. TOPAMAX [Concomitant]
     Indication: CONVULSION
     Dosage: 25 MG, TID
  3. KLONOPIN [Concomitant]
  4. SABRIL [Concomitant]
  5. ANTIDEPRESSANTS [Concomitant]
  6. LEXAPRO [Concomitant]
     Indication: ANXIETY
     Dosage: 10 MG/DAY
  7. LEXAPRO [Concomitant]
     Indication: AGITATION
  8. PRILOSEC [Concomitant]
     Indication: ACIDOSIS
     Dosage: 3 MG
  9. KEPPRA [Concomitant]
     Indication: CONVULSION
     Dosage: 500 MG, BID
  10. PREVACID [Concomitant]
  11. CARBATROL [Concomitant]
     Dosage: 200 MG, TID
  12. MELATON//MELATONIN [Concomitant]
     Dosage: 5 MG
  13. CLARITIN [Concomitant]
     Indication: SNEEZING
  14. CLARITIN [Concomitant]
     Indication: SEASONAL ALLERGY

REACTIONS (4)
  - Cardiac neoplasm unspecified [Unknown]
  - Convulsion [Recovered/Resolved]
  - Lip disorder [Not Recovered/Not Resolved]
  - Flushing [Not Recovered/Not Resolved]
